FAERS Safety Report 8964852 (Version 1)
Quarter: 2012Q4

REPORT INFORMATION
  Report Type: 
  Country: IT (occurrence: IT)
  Receive Date: 20121213
  Receipt Date: 20121213
  Transmission Date: 20130627
  Serious: Yes (Hospitalization)
  Sender: FDA-Public Use
  Company Number: IT-ASTRAZENECA-2012SE91636

PATIENT
  Age: 31655 Day
  Sex: Female

DRUGS (7)
  1. OMEPRAZOLE [Suspect]
     Indication: PROPHYLAXIS
     Route: 048
     Dates: start: 20121027, end: 20121030
  2. CAPTOPRIL + HYDROCHLOROTHIAZIDE [Suspect]
     Indication: HYPERTENSION
     Route: 048
     Dates: start: 20121023, end: 20121031
  3. NORMIX [Suspect]
     Indication: DIARRHOEA
     Route: 048
     Dates: start: 20121026, end: 20121030
  4. FUROSEMIDE [Suspect]
     Indication: ACUTE RESPIRATORY FAILURE
     Route: 042
     Dates: start: 20121027, end: 20121030
  5. FOLINA [Concomitant]
  6. SOTALOL [Concomitant]
  7. ENOXAPARIN [Concomitant]

REACTIONS (3)
  - Monocytosis [Recovered/Resolved]
  - Neutropenia [Recovered/Resolved]
  - Leukopenia [Recovered/Resolved]
